FAERS Safety Report 24860112 (Version 3)
Quarter: 2025Q1

REPORT INFORMATION
  Report Type: Spontaneous
  Country: US (occurrence: US)
  Receive Date: 20250120
  Receipt Date: 20250310
  Transmission Date: 20250409
  Serious: No
  Sender: ROCHE
  Company Number: US-ROCHE-10000184690

PATIENT
  Age: 22 Year
  Sex: Male
  Weight: 138 kg

DRUGS (2)
  1. HEMLIBRA [Suspect]
     Active Substance: EMICIZUMAB-KXWH
     Indication: Factor VIII deficiency
     Dosage: STRENGTH: 105MG/7ML
     Route: 058
     Dates: start: 202003
  2. HEMLIBRA [Suspect]
     Active Substance: EMICIZUMAB-KXWH
     Route: 058
     Dates: start: 2021

REACTIONS (4)
  - Depression [Unknown]
  - Treatment noncompliance [Unknown]
  - Epistaxis [Unknown]
  - Memory impairment [Unknown]

NARRATIVE: CASE EVENT DATE: 20250220
